FAERS Safety Report 17120099 (Version 7)
Quarter: 2021Q3

REPORT INFORMATION
  Report Type: Report from Study
  Country: DO (occurrence: DO)
  Receive Date: 20191206
  Receipt Date: 20210726
  Transmission Date: 20211014
  Serious: Yes (Other)
  Sender: FDA-Public Use
  Company Number: NVSC2019DO054536

PATIENT
  Age: 25 Year
  Sex: Female

DRUGS (4)
  1. GILENYA [Suspect]
     Active Substance: FINGOLIMOD HYDROCHLORIDE
     Dosage: 0.5 MG, QD
     Route: 048
     Dates: start: 20200419
  2. GILENYA [Suspect]
     Active Substance: FINGOLIMOD HYDROCHLORIDE
     Dosage: 0.5 MG
     Route: 065
  3. VITAMIIN C [Concomitant]
     Active Substance: ASCORBIC ACID
     Indication: PRODUCT USED FOR UNKNOWN INDICATION
     Dosage: 2 DF, QD
     Route: 065
  4. GILENYA [Suspect]
     Active Substance: FINGOLIMOD HYDROCHLORIDE
     Indication: RELAPSING-REMITTING MULTIPLE SCLEROSIS
     Dosage: 0.5 MG, QD
     Route: 048
     Dates: start: 20191128

REACTIONS (25)
  - Head discomfort [Unknown]
  - Pyrexia [Unknown]
  - COVID-19 [Recovered/Resolved]
  - Blood pressure decreased [Unknown]
  - Headache [Unknown]
  - Asphyxia [Unknown]
  - Pain in extremity [Unknown]
  - Cough [Unknown]
  - Faeces discoloured [Unknown]
  - Depressed mood [Unknown]
  - Paraesthesia [Unknown]
  - Pruritus [Recovered/Resolved]
  - Dyspnoea [Unknown]
  - Diarrhoea [Unknown]
  - Decreased immune responsiveness [Recovered/Resolved]
  - Fear [Unknown]
  - Product dose omission issue [Unknown]
  - Amoebiasis [Unknown]
  - Abdominal pain upper [Unknown]
  - Bradycardia [Unknown]
  - Pain [Unknown]
  - Somnolence [Unknown]
  - Tremor [Unknown]
  - Oropharyngeal discomfort [Unknown]
  - Anxiety [Unknown]

NARRATIVE: CASE EVENT DATE: 20200331
